FAERS Safety Report 8687783 (Version 3)
Quarter: 2012Q4

REPORT INFORMATION
  Report Type: Report from Study
  Country: PH (occurrence: PH)
  Receive Date: 20120727
  Receipt Date: 20121203
  Transmission Date: 20130627
  Serious: Yes (Hospitalization)
  Sender: FDA-Public Use
  Company Number: PH-PFIZER INC-2011280259

PATIENT
  Age: 24 Year
  Sex: Female
  Weight: 28 kg

DRUGS (4)
  1. AXITINIB [Suspect]
     Indication: METASTATIC RENAL CELL CARCINOMA
     Dosage: 5 mg, 2x/day
     Route: 048
     Dates: start: 20110106, end: 20111110
  2. MORPHINE SULFATE [Concomitant]
     Indication: BACK PAIN
     Dosage: 30 mg, 1x/day
     Route: 048
     Dates: start: 20111110, end: 20111116
  3. OMEPRAZOLE [Concomitant]
     Dosage: 60 mg, 1x/day
     Route: 048
     Dates: start: 20111116, end: 20111122
  4. VITAMIN K [Concomitant]
     Dosage: 1 cap every 8 hours for 3 days
     Route: 048
     Dates: start: 20111116, end: 20111122

REACTIONS (2)
  - Gastritis [Recovered/Resolved]
  - Oesophagitis [Recovered/Resolved]
